FAERS Safety Report 7494514-8 (Version None)
Quarter: 2011Q2

REPORT INFORMATION
  Report Type: 
  Country: None (occurrence: None)
  Receive Date: 20110520
  Receipt Date: 20110508
  Transmission Date: 20111010
  Serious: Yes (Hospitalization, Other)
  Sender: FDA-Public Use
  Company Number: PHEH2006US07280

PATIENT
  Sex: Female
  Weight: 104.31 kg

DRUGS (41)
  1. AREDIA [Suspect]
  2. COUMADIN [Concomitant]
  3. TRAMADOL HCL [Concomitant]
  4. NEURONTIN [Concomitant]
  5. VELCADE [Concomitant]
  6. LYRICA [Concomitant]
  7. OMEPRAZOLE [Concomitant]
  8. CLONIDINE [Concomitant]
  9. FLAGYL [Concomitant]
  10. LECITHIN [Concomitant]
  11. ONDANSETRON [Concomitant]
  12. ROBITUSSIN DM                           /USA/ [Concomitant]
  13. MELOXICAM [Concomitant]
  14. LISINOPRIL [Concomitant]
  15. AMOXICILLIN [Concomitant]
  16. ARANESP [Concomitant]
  17. MELOXICAM [Concomitant]
  18. ACETAMINOPHEN [Concomitant]
  19. PRILOSEC [Concomitant]
  20. HYDROMORPHONE HCL [Concomitant]
  21. POTASSIUM CHLORIDE [Concomitant]
  22. LEVAQUIN [Concomitant]
  23. CIPROFLOXACIN [Concomitant]
  24. ADRIAMYCIN PFS [Concomitant]
  25. AVELOX [Concomitant]
  26. ADVAIR DISKUS 100/50 [Concomitant]
  27. MIRTAZAPINE [Concomitant]
  28. VASOTEC [Concomitant]
  29. MAGNESIUM SULFATE [Concomitant]
  30. DEXAMETHASONE [Concomitant]
  31. COMBIVENT [Concomitant]
  32. TESSALON [Concomitant]
  33. BEXTRA [Concomitant]
  34. ZOMETA [Suspect]
  35. DOXEPIN [Concomitant]
  36. GLUCAGON [Concomitant]
  37. VINCRISTINE [Concomitant]
  38. FAMOTIDINE [Concomitant]
  39. NEOSPORIN [Concomitant]
  40. SYNTHROID [Concomitant]
  41. TRIAMTERENE AND HYDROCHLOROTHIAZID ^HARRIS^ [Concomitant]

REACTIONS (38)
  - SENSORY LOSS [None]
  - VOMITING [None]
  - HYPONATRAEMIA [None]
  - BACK PAIN [None]
  - RENAL MASS [None]
  - HAEMORRHOIDS [None]
  - CHRONIC OBSTRUCTIVE PULMONARY DISEASE [None]
  - DIARRHOEA [None]
  - RENAL FAILURE [None]
  - SCOLIOSIS [None]
  - BONE DISORDER [None]
  - ORAL INFECTION [None]
  - GENERAL PHYSICAL HEALTH DETERIORATION [None]
  - ANXIETY [None]
  - DENTAL CARIES [None]
  - ELECTROLYTE IMBALANCE [None]
  - HYPOAESTHESIA [None]
  - OSTEOLYSIS [None]
  - SWELLING [None]
  - ABDOMINAL PAIN [None]
  - GASTRITIS [None]
  - PULMONARY EMBOLISM [None]
  - INTERMITTENT CLAUDICATION [None]
  - OSTEONECROSIS OF JAW [None]
  - DECREASED INTEREST [None]
  - SPINAL COLUMN STENOSIS [None]
  - SPINAL OSTEOARTHRITIS [None]
  - HIATUS HERNIA [None]
  - PAIN [None]
  - ARTHROPATHY [None]
  - SCIATICA [None]
  - NAUSEA [None]
  - HYPOTENSION [None]
  - DEHYDRATION [None]
  - HYPOMAGNESAEMIA [None]
  - ANAEMIA OF CHRONIC DISEASE [None]
  - DYSPNOEA [None]
  - ASTHMA [None]
